FAERS Safety Report 19233667 (Version 4)
Quarter: 2021Q3

REPORT INFORMATION
  Report Type: Report from Study
  Country: US (occurrence: US)
  Receive Date: 20210507
  Receipt Date: 20210831
  Transmission Date: 20211014
  Serious: No
  Sender: FDA-Public Use
  Company Number: NVSC2021US102635

PATIENT
  Sex: Female

DRUGS (2)
  1. COSENTYX [Suspect]
     Active Substance: SECUKINUMAB
     Indication: PSORIATIC ARTHROPATHY
     Dosage: 150 MG, EVERY FOUR WEEKS
     Route: 058
  2. COSENTYX [Suspect]
     Active Substance: SECUKINUMAB
     Dosage: 150 MG, EVERY OTHER WEEK
     Route: 058

REACTIONS (6)
  - Off label use [Unknown]
  - Inflammation [Unknown]
  - Drug ineffective [Unknown]
  - Migraine [Unknown]
  - Peripheral swelling [Unknown]
  - Arthralgia [Unknown]
